FAERS Safety Report 6589942-9 (Version None)
Quarter: 2010Q1

REPORT INFORMATION
  Report Type: 
  Country: None (occurrence: None)
  Receive Date: 20100219
  Receipt Date: 20100218
  Transmission Date: 20100710
  Serious: Yes (Life-Threatening)
  Sender: FDA-Public Use
  Company Number: US-ROXANE LABORATORIES, INC.-2009-RO-01251RO

PATIENT
  Sex: Female
  Weight: 16 kg

DRUGS (6)
  1. LEVETIRACETAM [Suspect]
     Indication: CONVULSION
     Dosage: 10 ML
     Route: 048
     Dates: start: 20090501, end: 20091201
  2. LEVETIRACETAM [Suspect]
     Dosage: 1100 MG
     Route: 048
     Dates: start: 20091101, end: 20091202
  3. KEPPRA [Suspect]
     Indication: CONVULSION
     Dosage: 10 ML
     Route: 048
     Dates: start: 20081101, end: 20090501
  4. KEPPRA [Suspect]
     Dosage: 11 ML
     Route: 048
     Dates: start: 20091202
  5. H1N1 VACCINE [Suspect]
     Indication: INFLUENZA IMMUNISATION
  6. CLONAZEPAM [Concomitant]
     Indication: CONVULSION
     Dosage: 1 MG
     Route: 048
     Dates: start: 20081201

REACTIONS (2)
  - CONVULSION [None]
  - PARTIAL SEIZURES [None]
